FAERS Safety Report 15617499 (Version 1)
Quarter: 2018Q4

REPORT INFORMATION
  Report Type: Spontaneous
  Country: IT (occurrence: IT)
  Receive Date: 20181114
  Receipt Date: 20181114
  Transmission Date: 20190205
  Serious: Yes (Other)
  Sender: FDA-Public Use
  Company Number: IT-ELI_LILLY_AND_COMPANY-IT201805012566

PATIENT
  Age: 66 Year
  Sex: Female

DRUGS (8)
  1. FORSTEO 250UG/ML [Suspect]
     Active Substance: TERIPARATIDE
     Dosage: UNK
     Route: 065
     Dates: end: 20180910
  2. LEXOTAN [Concomitant]
     Active Substance: BROMAZEPAM
     Indication: PRODUCT USED FOR UNKNOWN INDICATION
     Dosage: UNK, PRN
  3. VITAMIN D [Concomitant]
     Active Substance: CHOLECALCIFEROL
     Indication: PRODUCT USED FOR UNKNOWN INDICATION
  4. FORSTEO 250UG/ML [Suspect]
     Active Substance: TERIPARATIDE
     Indication: OSTEOPOROSIS
     Dosage: UNK UNK, UNKNOWN
     Route: 065
     Dates: start: 20180521
  5. FORSTEO 250UG/ML [Suspect]
     Active Substance: TERIPARATIDE
     Dosage: UNK UNK, UNKNOWN
     Route: 065
  6. DIBASE [Concomitant]
     Active Substance: CHOLECALCIFEROL
     Indication: PRODUCT USED FOR UNKNOWN INDICATION
     Dosage: UNK, 2/W (50 DROPS)
  7. CRESTOR [Concomitant]
     Active Substance: ROSUVASTATIN CALCIUM
     Indication: PRODUCT USED FOR UNKNOWN INDICATION
     Dosage: UNK, PRN
  8. METFORMIN [Concomitant]
     Active Substance: METFORMIN HYDROCHLORIDE
     Indication: PRODUCT USED FOR UNKNOWN INDICATION

REACTIONS (13)
  - Erythema [Unknown]
  - Swelling face [Recovered/Resolved]
  - Erythema [Recovering/Resolving]
  - Injection site erythema [Recovered/Resolved]
  - Injection site pain [Unknown]
  - Injection site swelling [Unknown]
  - Injection site haematoma [Unknown]
  - Seizure [Unknown]
  - Thyroid mass [Unknown]
  - Peripheral swelling [Recovered/Resolved]
  - Injection site pruritus [Recovered/Resolved]
  - Thyroid function test abnormal [Unknown]
  - Injection site erythema [Recovered/Resolved]

NARRATIVE: CASE EVENT DATE: 20180521
